FAERS Safety Report 7415917-3 (Version None)
Quarter: 2011Q2

REPORT INFORMATION
  Report Type: 
  Country: None (occurrence: None)
  Receive Date: 20110414
  Receipt Date: 20110408
  Transmission Date: 20111010
  Serious: Yes (Hospitalization)
  Sender: FDA-Public Use
  Company Number: US-ABBOTT-11P-163-0717892-00

PATIENT
  Sex: Male
  Weight: 79.45 kg

DRUGS (5)
  1. PROAIR HFA [Concomitant]
     Indication: PRODUCT USED FOR UNKNOWN INDICATION
  2. HUMIRA [Suspect]
     Indication: PSORIASIS
     Dosage: INITIAL 2 INJ ON DAY 1 THEN 1 A WK LATER
     Dates: start: 20110301, end: 20110301
  3. FLONASE [Concomitant]
     Indication: PRODUCT USED FOR UNKNOWN INDICATION
  4. HUMIRA [Suspect]
     Indication: PSORIATIC ARTHROPATHY
  5. ZYRTEC [Concomitant]
     Indication: PRODUCT USED FOR UNKNOWN INDICATION

REACTIONS (3)
  - DIVERTICULAR PERFORATION [None]
  - SINUSITIS [None]
  - DIVERTICULITIS [None]
